FAERS Safety Report 7785908-1 (Version None)
Quarter: 2011Q3

REPORT INFORMATION
  Report Type: 
  Country: None (occurrence: None)
  Receive Date: 20110929
  Receipt Date: 20110921
  Transmission Date: 20111222
  Serious: Yes (Hospitalization)
  Sender: FDA-Public Use
  Company Number: US-UCBSA-041846

PATIENT
  Sex: Female
  Weight: 69.4 kg

DRUGS (6)
  1. NORVASAC [Concomitant]
     Dosage: DAILY DOSE: 5 MG
     Route: 048
  2. SULFASALAZINE [Concomitant]
     Route: 048
  3. CERTOLIZUMAB PEGOL [Suspect]
     Indication: RHEUMATOID ARTHRITIS
     Dosage: 200 MG, 4 DOSES RECEIVED
     Route: 058
     Dates: start: 20110711, end: 20110920
  4. METHOTREXATE [Concomitant]
     Dosage: 20 MG EVERY WEEK
     Route: 048
  5. LISINOPRIL [Concomitant]
     Dosage: DAILY DOSE: 40 MG
     Route: 048
  6. FOLIC ACID [Concomitant]
     Dosage: DAILY DOSE: 1 MG
     Route: 048

REACTIONS (2)
  - EMPHYSEMATOUS CYSTITIS [None]
  - RENAL MASS [None]
